FAERS Safety Report 18579266 (Version 1)
Quarter: 2020Q4

REPORT INFORMATION
  Report Type: Spontaneous
  Country: US (occurrence: US)
  Receive Date: 20201203
  Receipt Date: 20201203
  Transmission Date: 20210114
  Serious: Yes (Hospitalization)
  Sender: FDA-Public Use
  Company Number: None

PATIENT
  Sex: Male

DRUGS (2)
  1. EMPLICITI [Suspect]
     Active Substance: ELOTUZUMAB
     Indication: CEREBROVASCULAR ACCIDENT
     Route: 043
  2. VELCADE [Suspect]
     Active Substance: BORTEZOMIB
     Indication: CEREBROVASCULAR ACCIDENT
     Route: 058

REACTIONS (1)
  - Cerebrovascular accident [None]
